FAERS Safety Report 4686567-7 (Version None)
Quarter: 2005Q2

REPORT INFORMATION
  Report Type: 
  Country: None (occurrence: None)
  Receive Date: 20050606
  Receipt Date: 20050524
  Transmission Date: 20051028
  Serious: Yes (Congenital Anomaly)
  Sender: FDA-Public Use
  Company Number: 2005079138

PATIENT

DRUGS (1)
  1. ZIPRASIDONE (CAPS)  (ZIPRASIDONE) [Suspect]
     Indication: ILL-DEFINED DISORDER

REACTIONS (17)
  - BRADYARRHYTHMIA [None]
  - CLINODACTYLY [None]
  - CONGENITAL NAIL DISORDER [None]
  - CONGENITAL NOSE MALFORMATION [None]
  - DRUG EXPOSURE DURING PREGNANCY [None]
  - ELECTROCARDIOGRAM QT PROLONGED [None]
  - FACIAL DYSMORPHISM [None]
  - FINGER HYPOPLASIA [None]
  - FOETAL ARRHYTHMIA [None]
  - FOETAL GROWTH RETARDATION [None]
  - FOETAL MALFORMATION [None]
  - NEONATAL HYPOXIA [None]
  - PHALANGEAL HYPOPLASIA [None]
  - PREMATURE BABY [None]
  - REPERFUSION INJURY [None]
  - SMALL FOR DATES BABY [None]
  - TOE DEFORMITY [None]
